FAERS Safety Report 6688412-7 (Version None)
Quarter: 2010Q2

REPORT INFORMATION
  Report Type: 
  Country: None (occurrence: None)
  Receive Date: 20100420
  Receipt Date: 20100413
  Transmission Date: 20101027
  Serious: Yes (Death, Other)
  Sender: FDA-Public Use
  Company Number: IT-CELGENEUS-083-CCAZA-10041023

PATIENT

DRUGS (3)
  1. AZACITIDINE [Suspect]
     Indication: MYELODYSPLASTIC SYNDROME
     Route: 065
  2. PARACETAMOL [Concomitant]
     Indication: DRUG USE FOR UNKNOWN INDICATION
     Route: 065
  3. ANTIEMETICS AND ANTINAUSEANTS [Concomitant]
     Indication: INJECTION SITE REACTION
     Route: 065

REACTIONS (30)
  - ANAEMIA [None]
  - BRONCHITIS [None]
  - CARDIAC ARREST [None]
  - CARDIO-RESPIRATORY ARREST [None]
  - CELLULITIS [None]
  - CONSTIPATION [None]
  - CORONARY ARTERY DISEASE [None]
  - DIARRHOEA [None]
  - DISEASE PROGRESSION [None]
  - EPISTAXIS [None]
  - FATIGUE [None]
  - GINGIVAL BLEEDING [None]
  - HAEMORRHAGE [None]
  - INFECTION [None]
  - INJECTION SITE ERYTHEMA [None]
  - INJECTION SITE REACTION [None]
  - LEUKOPENIA [None]
  - MELAENA [None]
  - MOUTH HAEMORRHAGE [None]
  - MYELODYSPLASTIC SYNDROME TRANSFORMATION [None]
  - NAUSEA [None]
  - NEUTROPENIA [None]
  - NO THERAPEUTIC RESPONSE [None]
  - PNEUMONIA [None]
  - PYREXIA [None]
  - RECTAL HAEMORRHAGE [None]
  - RESPIRATORY FAILURE [None]
  - SEPSIS [None]
  - THROMBOCYTOPENIA [None]
  - VOMITING [None]
